FAERS Safety Report 16123952 (Version 1)
Quarter: 2019Q1

REPORT INFORMATION
  Report Type: Report from Study
  Country: US (occurrence: US)
  Receive Date: 20190327
  Receipt Date: 20190327
  Transmission Date: 20190418
  Serious: Yes (Hospitalization)
  Sender: FDA-Public Use
  Company Number: US-CELGENEUS-USA-20190307672

PATIENT
  Age: 72 Year
  Sex: Male
  Weight: 84.2 kg

DRUGS (1)
  1. AZACITIDINE (SANDOZ) [Suspect]
     Active Substance: AZACITIDINE
     Indication: ACUTE MYELOID LEUKAEMIA
     Dosage: 150 MILLIGRAM/SQ. METER
     Route: 041
     Dates: start: 20150604, end: 20150610

REACTIONS (1)
  - Bacteraemia [Recovered/Resolved]

NARRATIVE: CASE EVENT DATE: 20150622
